FAERS Safety Report 5751927-X (Version None)
Quarter: 2008Q2

REPORT INFORMATION
  Report Type: 
  Country: None (occurrence: None)
  Receive Date: 20080529
  Receipt Date: 20080516
  Transmission Date: 20081010
  Serious: Yes (Hospitalization)
  Sender: FDA-Public Use
  Company Number: JP-ELI_LILLY_AND_COMPANY-JP200801007112

PATIENT
  Sex: Male
  Weight: 69 kg

DRUGS (26)
  1. PEMETREXED [Suspect]
     Indication: PLEURAL MESOTHELIOMA MALIGNANT
     Dosage: 815 MG, OTHER
     Route: 042
     Dates: start: 20071012, end: 20071012
  2. PEMETREXED [Suspect]
     Dosage: 750 MG, OTHER
     Route: 042
     Dates: start: 20071114, end: 20071114
  3. CISPLATIN [Suspect]
     Indication: PLEURAL MESOTHELIOMA MALIGNANT
     Dosage: 120 MG, OTHER
     Route: 042
     Dates: start: 20071012, end: 20071012
  4. PANVITAN [Concomitant]
     Dosage: 1 G, DAILY (1/D)
     Route: 048
     Dates: start: 20071004
  5. CYANOCOBALAMIN [Concomitant]
     Dosage: UNK, UNK
     Route: 030
     Dates: start: 20071004, end: 20071004
  6. UNASYN [Concomitant]
     Indication: PYREXIA
     Dosage: 3 G, DAILY (1/D)
     Route: 042
     Dates: end: 20071013
  7. TENORMIN [Concomitant]
     Indication: HYPERTENSION
     Dosage: 50 MG, DAILY (1/D)
     Route: 048
     Dates: end: 20071120
  8. SELBEX [Concomitant]
     Indication: PROPHYLAXIS
     Dosage: 100 MG, DAILY (1/D)
     Route: 048
     Dates: end: 20071120
  9. CERCINE [Concomitant]
     Indication: INSOMNIA
     Dosage: 2 MG, DAILY (1/D)
     Route: 048
  10. LOXONIN [Concomitant]
     Indication: PYREXIA
     Dosage: 60 MG, DAILY (1/D)
     Route: 048
     Dates: end: 20071101
  11. LOXONIN [Concomitant]
     Dosage: 60 MG, 3/D
     Route: 048
     Dates: start: 20071102, end: 20071107
  12. LOXONIN [Concomitant]
     Dosage: 60 MG, 2/D
     Route: 048
     Dates: start: 20071108
  13. MUCOSTA [Concomitant]
     Indication: PYREXIA
     Dosage: 100 MG, DAILY (1/D)
     Route: 048
     Dates: end: 20071101
  14. MUCOSTA [Concomitant]
     Dosage: 100 MG, 3/D
     Route: 048
     Dates: start: 20071102, end: 20071107
  15. MUCOSTA [Concomitant]
     Dosage: 100 MG, 2/D
     Route: 048
     Dates: start: 20071108
  16. BROACT [Concomitant]
     Indication: INSOMNIA
     Dosage: 3 G, UNK
     Route: 042
     Dates: start: 20071015, end: 20071017
  17. SOLDEM 3A [Concomitant]
     Indication: BLOOD CREATININE INCREASED
     Dosage: 500 ML, DAILY (1/D)
     Route: 042
     Dates: start: 20071015, end: 20071017
  18. SOLDEM 3A [Concomitant]
     Dosage: 1000 ML, DAILY (1/D)
     Route: 042
     Dates: start: 20071017, end: 20071024
  19. LACTEC [Concomitant]
     Indication: DEHYDRATION
     Dosage: 500 ML, DAILY (1/D)
     Route: 042
     Dates: start: 20071015, end: 20071017
  20. LACTEC [Concomitant]
     Dosage: 1000 ML, DAILY (1/D)
     Route: 042
     Dates: start: 20071017, end: 20071024
  21. VITAMEDIN [Concomitant]
     Indication: DEHYDRATION
     Dosage: 1 D/F, DAILY (1/D)
     Route: 042
     Dates: start: 20071017, end: 20071024
  22. VOLTAREN /00372301/ [Concomitant]
     Indication: PYREXIA
     Dosage: 25 MG, OTHER
     Dates: start: 20071018, end: 20071018
  23. EURODIN [Concomitant]
     Indication: INSOMNIA
     Dosage: 1 MG, DAILY (1/D)
     Route: 048
     Dates: start: 20071031, end: 20071119
  24. EURODIN [Concomitant]
     Dosage: 2 MG, DAILY (1/D)
     Route: 048
     Dates: start: 20071120
  25. PREDONINE [Concomitant]
     Indication: PYREXIA
     Dosage: 20 MG, DAILY (1/D)
     Route: 048
     Dates: start: 20071107
  26. ROCEPHIN [Concomitant]
     Indication: PYREXIA
     Dosage: 2 G, DAILY (1/D)
     Route: 042
     Dates: start: 20071018, end: 20071029

REACTIONS (3)
  - BLOOD UREA INCREASED [None]
  - HYPONATRAEMIA [None]
  - PALPITATIONS [None]
